FAERS Safety Report 13639034 (Version 9)
Quarter: 2018Q3

REPORT INFORMATION
  Report Type: Spontaneous
  Country: US (occurrence: US)
  Receive Date: 20170609
  Receipt Date: 20180906
  Transmission Date: 20181010
  Serious: Yes (Hospitalization)
  Sender: FDA-Public Use
  Company Number: US-ACTELION-A-NJ2017-155036

PATIENT
  Age: 35 Year
  Sex: Female

DRUGS (3)
  1. OPSUMIT [Suspect]
     Active Substance: MACITENTAN
     Indication: PULMONARY ARTERIAL HYPERTENSION
     Dosage: 10 MG, QD
     Route: 048
     Dates: start: 20161022
  2. TRIAMCINOLONE [Concomitant]
     Active Substance: TRIAMCINOLONE
  3. REMODULIN [Concomitant]
     Active Substance: TREPROSTINIL
     Dosage: 100?200 NKM CONTINUOUSLY
     Route: 058
     Dates: start: 20170228

REACTIONS (15)
  - Pulmonary hypertension [Recovering/Resolving]
  - Fluid retention [Not Recovered/Not Resolved]
  - Dyspnoea [Not Recovered/Not Resolved]
  - Weight increased [Unknown]
  - Cardiac failure [Recovering/Resolving]
  - Headache [Not Recovered/Not Resolved]
  - Disease progression [Recovering/Resolving]
  - Drug dose omission [Unknown]
  - Nausea [Not Recovered/Not Resolved]
  - Dysphonia [Unknown]
  - Catheter site pain [Unknown]
  - Diarrhoea [Not Recovered/Not Resolved]
  - Heart and lung transplant [Recovering/Resolving]
  - Dyspnoea exertional [Unknown]
  - Cough [Unknown]

NARRATIVE: CASE EVENT DATE: 20180319
